FAERS Safety Report 17753227 (Version 3)
Quarter: 2020Q4

REPORT INFORMATION
  Report Type: Report from Study
  Country: None (occurrence: US)
  Receive Date: 20200506
  Receipt Date: 20201012
  Transmission Date: 20210113
  Serious: Yes (Hospitalization, Other)
  Sender: FDA-Public Use
  Company Number: US-ABBVIE-20K-163-3393141-00

PATIENT
  Age: 70 Year
  Sex: Male
  Weight: 111.23 kg

DRUGS (1)
  1. HUMIRA [Suspect]
     Active Substance: ADALIMUMAB
     Indication: CROHN^S DISEASE
     Dosage: HUMIRA CF?HUMIRA STARTED MORE THAN 6 YEARS AGO
     Route: 058
     Dates: start: 2014

REACTIONS (4)
  - Large intestine polyp [Recovered/Resolved]
  - Intestinal obstruction [Recovered/Resolved]
  - Blood cholesterol increased [Unknown]
  - Precancerous cells present [Recovered/Resolved]

NARRATIVE: CASE EVENT DATE: 2020
